FAERS Safety Report 5070917-6 (Version None)
Quarter: 2006Q3

REPORT INFORMATION
  Report Type: 
  Country: None (occurrence: None)
  Receive Date: 20060804
  Receipt Date: 20060329
  Transmission Date: 20061208
  Serious: Yes (Hospitalization)
  Sender: FDA-Public Use
  Company Number: PHMT2006CA00987

PATIENT
  Age: 56 Year
  Sex: Female

DRUGS (5)
  1. CLOZARIL [Suspect]
     Indication: BIPOLAR DISORDER
     Dosage: 800 MG
     Route: 048
  2. CLOZARIL [Suspect]
     Dosage: 150 MG DAILY
     Route: 048
     Dates: start: 20020101, end: 20060329
  3. CYCLEN [Suspect]
     Dosage: UNK, QD
     Dates: start: 20051101, end: 20060329
  4. VENTOLIN [Concomitant]
  5. GLUCOPHAGE [Concomitant]
     Dosage: 250 MG, BID
     Route: 048

REACTIONS (8)
  - DRUG INTERACTION [None]
  - DRUG TOXICITY [None]
  - DYSPNOEA EXERTIONAL [None]
  - FIBROMA [None]
  - LIMB DISCOMFORT [None]
  - MYOCLONUS [None]
  - POISONING [None]
  - PULMONARY EMBOLISM [None]
